FAERS Safety Report 7610631-3 (Version None)
Quarter: 2011Q3

REPORT INFORMATION
  Report Type: 
  Country: None (occurrence: None)
  Receive Date: 20110715
  Receipt Date: 20110707
  Transmission Date: 20111222
  Serious: Yes (Life-Threatening, Hospitalization, Other)
  Sender: FDA-Public Use
  Company Number: CA-BAYER-2011-058911

PATIENT
  Age: 33 Year
  Sex: Female
  Weight: 63.492 kg

DRUGS (1)
  1. MIRENA [Suspect]
     Dosage: 20 ?G, CONT
     Route: 015

REACTIONS (17)
  - INSOMNIA [None]
  - MOOD ALTERED [None]
  - RESTLESSNESS [None]
  - VOMITING [None]
  - DEPRESSED MOOD [None]
  - MENORRHAGIA [None]
  - PRURITUS [None]
  - ANXIETY [None]
  - PALPITATIONS [None]
  - TREMOR [None]
  - ABDOMINAL DISTENSION [None]
  - WEIGHT INCREASED [None]
  - ACNE [None]
  - MALAISE [None]
  - NAUSEA [None]
  - NERVOUSNESS [None]
  - DYSMENORRHOEA [None]
